FAERS Safety Report 9860042 (Version 2)
Quarter: 2014Q1

REPORT INFORMATION
  Report Type: Spontaneous
  Country: AU (occurrence: AU)
  Receive Date: 20140131
  Receipt Date: 20140221
  Transmission Date: 20141002
  Serious: Yes (Hospitalization, Other)
  Sender: FDA-Public Use
  Company Number: AU-AMGEN-AUSSP2014005593

PATIENT
  Age: 48 Year
  Sex: Female
  Weight: 65 kg

DRUGS (2)
  1. NPLATE [Suspect]
     Indication: IMMUNE THROMBOCYTOPENIC PURPURA
     Dosage: 160 MUG, QWK
     Route: 058
     Dates: start: 2012
  2. AMOXYL [Concomitant]
     Indication: POST PROCEDURAL COMPLICATION
     Dosage: 500 MG, QD
     Dates: start: 20131218

REACTIONS (1)
  - Therapeutic response decreased [Not Recovered/Not Resolved]
